FAERS Safety Report 6717210-0 (Version None)
Quarter: 2010Q2

REPORT INFORMATION
  Report Type: 
  Country: None (occurrence: None)
  Receive Date: 20100510
  Receipt Date: 20100427
  Transmission Date: 20101027
  Serious: Yes (Other)
  Sender: FDA-Public Use
  Company Number: PHEH2010US02942

PATIENT
  Sex: Male

DRUGS (2)
  1. EXJADE [Suspect]
     Dosage: 1250 MG, QD
     Route: 048
  2. CHEMOTHERAPEUTICS NOS [Concomitant]

REACTIONS (2)
  - ACUTE LEUKAEMIA [None]
  - DRUG DOSE OMISSION [None]
